FAERS Safety Report 22361870 (Version 1)
Quarter: 2023Q2

REPORT INFORMATION
  Report Type: Spontaneous
  Country: US (occurrence: US)
  Receive Date: 20230524
  Receipt Date: 20230524
  Transmission Date: 20230721
  Serious: Yes (Death, Other)
  Sender: FDA-Public Use
  Company Number: US-AMGEN-USASP2023084418

PATIENT

DRUGS (6)
  1. PEGFILGRASTIM [Suspect]
     Active Substance: PEGFILGRASTIM
     Indication: Prophylaxis
     Route: 065
  2. AZACITIDINE [Concomitant]
     Active Substance: AZACITIDINE
     Indication: Peripheral T-cell lymphoma unspecified
     Dosage: 300 MILLIGRAM, QD, S ADMINISTERED FOR 7 DAYS BEFORE CYCLE 1 OF CHOP; AND FOR 14 DAYS BEFORE CHOP CYC
     Route: 048
  3. CYCLOPHOSPHAMIDE [Concomitant]
     Active Substance: CYCLOPHOSPHAMIDE
     Indication: Peripheral T-cell lymphoma unspecified
     Dosage: DAY 1
  4. DOXORUBICIN HYDROCHLORIDE [Concomitant]
     Active Substance: DOXORUBICIN HYDROCHLORIDE
     Indication: Peripheral T-cell lymphoma unspecified
     Dosage: DAY 1-5
  5. VINCRISTINE SULFATE [Concomitant]
     Active Substance: VINCRISTINE SULFATE
     Indication: Peripheral T-cell lymphoma unspecified
     Dosage: DAY 1-5
  6. PREDNISONE [Concomitant]
     Active Substance: PREDNISONE
     Indication: Peripheral T-cell lymphoma unspecified
     Dosage: DAY 1-5

REACTIONS (43)
  - Death [Fatal]
  - Neutropenia [Unknown]
  - Anaemia [Unknown]
  - Febrile neutropenia [Unknown]
  - Cellulitis [Unknown]
  - Pneumonia [Unknown]
  - Clostridium difficile colitis [Unknown]
  - Strongyloidiasis [Unknown]
  - Influenza [Unknown]
  - COVID-19 pneumonia [Unknown]
  - Fatigue [Unknown]
  - Diarrhoea [Unknown]
  - Vomiting [Unknown]
  - Decreased appetite [Unknown]
  - Neuropathy peripheral [Unknown]
  - Hyponatraemia [Unknown]
  - Hypocalcaemia [Unknown]
  - Alanine aminotransferase increased [Unknown]
  - Headache [Unknown]
  - Hypoalbuminaemia [Unknown]
  - Rash [Unknown]
  - Thrombocytopenia [Unknown]
  - Upper respiratory tract infection [Unknown]
  - Peripheral T-cell lymphoma unspecified [Unknown]
  - Oral candidiasis [Unknown]
  - Constipation [Unknown]
  - Abdominal pain [Unknown]
  - Alopecia [Unknown]
  - Hypertension [Unknown]
  - Hyperglycaemia [Unknown]
  - Dysgeusia [Unknown]
  - Cough [Unknown]
  - Gastrooesophageal reflux disease [Unknown]
  - Nausea [Unknown]
  - Arthralgia [Unknown]
  - Pruritus [Unknown]
  - Aspartate aminotransferase increased [Unknown]
  - Hypotension [Unknown]
  - Dizziness [Unknown]
  - Myalgia [Unknown]
  - Pyrexia [Unknown]
  - Oedema [Unknown]
  - Blood alkaline phosphatase increased [Unknown]
